FAERS Safety Report 8544237-9 (Version None)
Quarter: 2012Q3

REPORT INFORMATION
  Report Type: 
  Country: None (occurrence: None)
  Receive Date: 20120727
  Receipt Date: 20120726
  Transmission Date: 20120928
  Serious: Yes (Other)
  Sender: FDA-Public Use
  Company Number: ES-ALLERGAN-1208046US

PATIENT
  Age: 28 Year
  Sex: Male

DRUGS (3)
  1. TIMOLOL MALEATE [Concomitant]
     Indication: PRODUCT USED FOR UNKNOWN INDICATION
     Dosage: UNK
  2. OZURDEX [Suspect]
     Indication: DIABETIC RETINAL OEDEMA
     Dosage: 0.7 MG, SINGLE
     Route: 031
     Dates: start: 20120515
  3. INSULIN [Concomitant]
     Indication: PRODUCT USED FOR UNKNOWN INDICATION
     Dosage: UNK

REACTIONS (1)
  - ENDOPHTHALMITIS [None]
